FAERS Safety Report 22966611 (Version 2)
Quarter: 2023Q4

REPORT INFORMATION
  Report Type: Spontaneous
  Country: US (occurrence: US)
  Receive Date: 20230921
  Receipt Date: 20231026
  Transmission Date: 20240110
  Serious: No
  Sender: FDA-Public Use
  Company Number: US-SANOFI-01765700

PATIENT
  Age: 69 Year
  Sex: Female
  Weight: 58.5 kg

DRUGS (2)
  1. DUPIXENT [Suspect]
     Active Substance: DUPILUMAB
     Indication: Asthma
     Dosage: 300 MG, QOW
     Route: 058
     Dates: start: 20230407, end: 20230809
  2. DUPIXENT [Suspect]
     Active Substance: DUPILUMAB
     Indication: Rhinitis allergic

REACTIONS (5)
  - Injection site dryness [Recovered/Resolved]
  - Injection site exfoliation [Recovered/Resolved]
  - Injection site pain [Recovered/Resolved]
  - Condition aggravated [Recovered/Resolved]
  - Product use in unapproved indication [Unknown]

NARRATIVE: CASE EVENT DATE: 20230407
